FAERS Safety Report 6080301-4 (Version None)
Quarter: 2009Q1

REPORT INFORMATION
  Report Type: 
  Country: None (occurrence: None)
  Receive Date: 20090217
  Receipt Date: 20090206
  Transmission Date: 20090719
  Serious: Yes (Hospitalization)
  Sender: FDA-Public Use
  Company Number: DE-TEVA-185424ISR

PATIENT
  Age: 22 Year
  Sex: Female

DRUGS (7)
  1. GABAPENTIN [Suspect]
     Indication: COMPLEX REGIONAL PAIN SYNDROME
     Route: 048
     Dates: start: 20080201, end: 20090123
  2. TILIDIN COMP. (TILIDINE, NALOXONE) [Suspect]
     Dates: start: 20081201, end: 20081201
  3. IBUPROFEN [Suspect]
     Dates: start: 20080801, end: 20090101
  4. PARACETAMOL [Suspect]
     Dates: start: 20081101, end: 20090101
  5. PREGABALIN [Suspect]
     Dates: start: 20080401, end: 20090101
  6. DICLOFENAC RESINATE [Suspect]
     Indication: PAIN
     Dates: start: 20081201
  7. HOMEOPATIC PREPARATION [Concomitant]

REACTIONS (17)
  - AMNESIA [None]
  - APATHY [None]
  - BLINDNESS [None]
  - CONVULSION [None]
  - DYSPNOEA [None]
  - HAEMATEMESIS [None]
  - HAEMOPTYSIS [None]
  - LOSS OF CONSCIOUSNESS [None]
  - MUSCLE SPASTICITY [None]
  - PAINFUL RESPIRATION [None]
  - PARAESTHESIA [None]
  - PARALYSIS [None]
  - SPEECH DISORDER [None]
  - TONGUE BITING [None]
  - TRANCE [None]
  - TREMOR [None]
  - UNRESPONSIVE TO STIMULI [None]
